FAERS Safety Report 19987955 (Version 1)
Quarter: 2021Q4

REPORT INFORMATION
  Report Type: Spontaneous
  Country: US (occurrence: US)
  Receive Date: 20211023
  Receipt Date: 20211023
  Transmission Date: 20220303
  Serious: No
  Sender: FDA-Public Use
  Company Number: US-JNJFOC-20211014909

PATIENT
  Sex: Male

DRUGS (1)
  1. STELARA [Suspect]
     Active Substance: USTEKINUMAB
     Indication: Crohn^s disease
     Route: 042
     Dates: start: 20210928

REACTIONS (5)
  - Fatigue [Unknown]
  - Decreased appetite [Unknown]
  - Abdominal discomfort [Unknown]
  - Drug ineffective [Unknown]
  - Irritability [Unknown]

NARRATIVE: CASE EVENT DATE: 20210930
